FAERS Safety Report 5017629-2 (Version None)
Quarter: 2006Q2

REPORT INFORMATION
  Report Type: 
  Country: None (occurrence: None)
  Receive Date: 20060604
  Receipt Date: 20060503
  Transmission Date: 20061013
  Serious: Yes (Hospitalization)
  Sender: FDA-Public Use
  Company Number: CA-ABBOTT-06P-028-0332556-00

PATIENT
  Age: 76 Year
  Sex: Male

DRUGS (4)
  1. BIAXIN [Suspect]
     Indication: NASOPHARYNGITIS
     Dates: start: 20060408, end: 20060410
  2. BIAXIN [Suspect]
     Indication: BREATH SOUNDS ABNORMAL
  3. BIAXIN [Suspect]
     Indication: VIRAL INFECTION
  4. LEVOTHYROXINE SODIUM [Concomitant]
     Indication: DRUG USE FOR UNKNOWN INDICATION

REACTIONS (6)
  - ABASIA [None]
  - CONFUSIONAL STATE [None]
  - DISORIENTATION [None]
  - FALL [None]
  - INSOMNIA [None]
  - MUSCULAR WEAKNESS [None]
